FAERS Safety Report 17569727 (Version 1)
Quarter: 2020Q1

REPORT INFORMATION
  Report Type: Spontaneous
  Country: US (occurrence: US)
  Receive Date: 20200323
  Receipt Date: 20200323
  Transmission Date: 20200409
  Serious: No
  Sender: FDA-Public Use
  Company Number: US-JNJFOC-20200230937

PATIENT
  Sex: Female

DRUGS (1)
  1. VISINE A MULTI-ACTION EYE ALLERGY RELIEF [Suspect]
     Active Substance: NAPHAZOLINE HYDROCHLORIDE\PHENIRAMINE MALEATE
     Indication: HYPERSENSITIVITY
     Dosage: 1 DROP EACH ONCE A DAY; START DATE: 2 MONTHS PRIOR THE REPORT
     Route: 047

REACTIONS (2)
  - Ocular hyperaemia [Recovered/Resolved]
  - Product contamination physical [Unknown]
